FAERS Safety Report 13640960 (Version 1)
Quarter: 2017Q2

REPORT INFORMATION
  Report Type: Spontaneous
  Country: US (occurrence: US)
  Receive Date: 20170612
  Receipt Date: 20170612
  Transmission Date: 20170830
  Serious: Yes (Other)
  Sender: FDA-Public Use
  Company Number: US-ASTRAZENECA-2017SE60173

PATIENT
  Age: 975 Month
  Sex: Male
  Weight: 109.8 kg

DRUGS (2)
  1. WATER PILL [Concomitant]
     Active Substance: UNSPECIFIED INGREDIENT
  2. TUDORZA PRESSAIR [Suspect]
     Active Substance: ACLIDINIUM BROMIDE
     Indication: LUNG DISORDER
     Dosage: ONE PUFF TWICE A DAY
     Route: 055

REACTIONS (7)
  - Peripheral swelling [Unknown]
  - Product quality issue [Unknown]
  - Wrong technique in product usage process [Unknown]
  - Neoplasm malignant [Unknown]
  - Cardiac infection [Unknown]
  - Gait disturbance [Unknown]
  - Intentional product misuse [Unknown]

NARRATIVE: CASE EVENT DATE: 201705
